FAERS Safety Report 19710776 (Version 2)
Quarter: 2021Q3

REPORT INFORMATION
  Report Type: Report from Study
  Country: IN (occurrence: IN)
  Receive Date: 20210816
  Receipt Date: 20210824
  Transmission Date: 20211014
  Serious: Yes (Hospitalization)
  Sender: FDA-Public Use
  Company Number: IN-PFIZER INC-202101008437

PATIENT
  Age: 71 Year
  Sex: Male
  Weight: 64 kg

DRUGS (10)
  1. SILOCAP D [Concomitant]
     Indication: URINARY TRACT DISORDER
     Dosage: 8 MG, 1X/DAY
     Route: 048
     Dates: start: 20200303
  2. ACILOC?RD [DOMPERIDONE;OMEPRAZOLE MAGNESIUM] [Concomitant]
     Indication: GASTROOESOPHAGEAL REFLUX DISEASE
     Dosage: 20 MG, 2X/DAY
     Route: 048
     Dates: start: 20210801
  3. ONDANSETRON [Concomitant]
     Active Substance: ONDANSETRON
     Indication: ANTIEMETIC SUPPORTIVE CARE
     Dosage: 8 MG, 3X/DAY
     Route: 048
     Dates: start: 20210801
  4. SOBISIS [Concomitant]
     Indication: ANTACID THERAPY
     Dosage: 500 MG, 3X/DAY
     Route: 048
     Dates: start: 20200303, end: 20210806
  5. REVELOL?XL [Concomitant]
     Indication: HYPERTENSION
     Dosage: 25 MG, 2X/DAY
     Route: 048
     Dates: start: 20200303
  6. GLIMISAVE MV [Concomitant]
     Indication: DIABETES MELLITUS
     Dosage: 2.3 MG, 1X/DAY
     Route: 048
     Dates: start: 20200303, end: 20210805
  7. AZTOR ASP [Concomitant]
     Indication: PROPHYLAXIS
     Dosage: 150 MG, 1X/DAY
     Route: 048
     Dates: start: 20200303
  8. DACOMITINIB [Suspect]
     Active Substance: DACOMITINIB
     Indication: NON-SMALL CELL LUNG CANCER
     Dosage: 45 MG, 1X/DAY
     Route: 048
     Dates: start: 20210708, end: 20210805
  9. BIZFER XT [Concomitant]
     Indication: VITAMIN SUPPLEMENTATION
     Dosage: 60 MG, 1X/DAY
     Route: 048
     Dates: start: 20200303
  10. BENGREAT [Concomitant]
     Indication: HYPERTENSION
     Dosage: 4 MG, 2X/DAY
     Route: 048
     Dates: start: 20200303

REACTIONS (1)
  - Acute kidney injury [Recovered/Resolved with Sequelae]

NARRATIVE: CASE EVENT DATE: 20210804
